FAERS Safety Report 6444798-X (Version None)
Quarter: 2009Q4

REPORT INFORMATION
  Report Type: 
  Country: None (occurrence: None)
  Receive Date: 20091118
  Receipt Date: 20091112
  Transmission Date: 20100525
  Serious: Yes (Other)
  Sender: FDA-Public Use
  Company Number: CH-RB-024888-09

PATIENT
  Age: 39 Year
  Sex: Male

DRUGS (5)
  1. SUBUTEX [Suspect]
     Indication: DRUG USE FOR UNKNOWN INDICATION
     Route: 065
  2. SUBUTEX [Suspect]
     Route: 065
  3. TRAZODONE HCL [Concomitant]
     Indication: DEPRESSION
     Route: 065
  4. TRAZODONE HCL [Concomitant]
     Indication: SLEEP DISORDER
     Route: 065
  5. PETHIDIN [Concomitant]
     Indication: DRUG USE FOR UNKNOWN INDICATION
     Dosage: DOSING DETAILS UNKNOWN
     Route: 065

REACTIONS (3)
  - DELUSION [None]
  - DISORIENTATION [None]
  - HALLUCINATION [None]
